FAERS Safety Report 6508039-7 (Version None)
Quarter: 2009Q4

REPORT INFORMATION
  Report Type: 
  Country: None (occurrence: None)
  Receive Date: 20091221
  Receipt Date: 20091211
  Transmission Date: 20100525
  Serious: Yes (Hospitalization)
  Sender: FDA-Public Use
  Company Number: IN-SANOFI-AVENTIS-200821870GDDC

PATIENT
  Age: 44 Year
  Sex: Male
  Weight: 88 kg

DRUGS (51)
  1. BLINDED THERAPY [Suspect]
     Indication: NON-SMALL CELL LUNG CANCER
     Dosage: DOSE UNIT: 6 MG/KG
     Route: 042
     Dates: start: 20081219, end: 20081219
  2. DOCETAXEL [Suspect]
     Indication: NON-SMALL CELL LUNG CANCER
     Route: 042
     Dates: start: 20081219, end: 20081219
  3. MULTI-VITAMINS [Concomitant]
     Dates: start: 20080815
  4. CLOTRIMAZOLE [Concomitant]
     Dates: start: 20080201
  5. CORTICOSTEROIDS [Concomitant]
  6. MULTI-VITAMINS [Concomitant]
     Dates: start: 20080201
  7. MULTI-VITAMINS [Concomitant]
     Route: 051
     Dates: start: 20080818, end: 20080820
  8. LEVOSALBUTAMOL [Concomitant]
     Route: 055
     Dates: start: 20080815
  9. IPRAVENT [Concomitant]
     Route: 055
     Dates: start: 20080815
  10. PANTOPRAZOLE [Concomitant]
     Dates: start: 20080815
  11. CIPLOX [Concomitant]
     Dates: start: 20080826
  12. KEPPRA [Concomitant]
     Dates: start: 20080906
  13. TEGRETOL [Concomitant]
     Dates: start: 20080905
  14. R-CIN [Concomitant]
     Dates: start: 20080912
  15. ISONIAZID [Concomitant]
     Dates: start: 20080912
  16. PYRAZINAMIDE [Concomitant]
     Dates: start: 20080912
  17. ETHAMBUTOL HYDROCHLORIDE [Concomitant]
     Dates: start: 20080912
  18. BENADON ^HOFFMANN^ [Concomitant]
     Dates: start: 20080912
  19. ASCORBIC ACID [Concomitant]
     Dates: start: 20080228
  20. TRYPTOMER [Concomitant]
     Dates: start: 20080228
  21. ATARAX [Concomitant]
     Dates: start: 20080811
  22. STAMLO [Concomitant]
     Dates: start: 20080813
  23. ONDANSETRON [Concomitant]
     Route: 051
     Dates: start: 20080924, end: 20080924
  24. ONDANSETRON [Concomitant]
     Route: 051
     Dates: start: 20081015, end: 20081015
  25. ONDANSETRON [Concomitant]
     Route: 051
     Dates: start: 20081105, end: 20081105
  26. ONDANSETRON [Concomitant]
     Route: 051
     Dates: start: 20081219, end: 20081219
  27. DECADRON /CAN/ [Concomitant]
     Route: 051
     Dates: start: 20080924, end: 20080924
  28. DECADRON /CAN/ [Concomitant]
     Dates: start: 20081016, end: 20081016
  29. DECADRON /CAN/ [Concomitant]
     Route: 051
     Dates: start: 20081105, end: 20081105
  30. DECADRON /CAN/ [Concomitant]
     Dates: start: 20081129, end: 20081129
  31. DECADRON /CAN/ [Concomitant]
     Dates: start: 20081224, end: 20081228
  32. DECADRON /CAN/ [Concomitant]
     Route: 051
     Dates: start: 20081219, end: 20081219
  33. RANTAC [Concomitant]
     Route: 051
     Dates: start: 20080924, end: 20080924
  34. RANTAC [Concomitant]
     Route: 051
     Dates: start: 20081015, end: 20081015
  35. RANTAC [Concomitant]
     Route: 051
     Dates: start: 20081105, end: 20081105
  36. RANTAC [Concomitant]
     Route: 051
     Dates: start: 20081219, end: 20081219
  37. RANTAC [Concomitant]
     Dates: start: 20090123
  38. DOMSTAL [Concomitant]
     Dates: start: 20081015
  39. FOLVITE [Concomitant]
     Dates: start: 20080821
  40. LACTULOSE [Concomitant]
     Dates: start: 20080828
  41. ALPHA D3 [Concomitant]
     Dates: start: 20081129
  42. SHELCAL [Concomitant]
     Dates: start: 20081129
  43. CODEINE LINCTUS [Concomitant]
     Dates: start: 20081219, end: 20090127
  44. WYSOLONE [Concomitant]
     Dates: start: 20081219, end: 20081223
  45. AMPICLOX [Concomitant]
     Dates: start: 20090109, end: 20090114
  46. FLUCONAZOLE [Concomitant]
     Dates: start: 20090109, end: 20090114
  47. TARGOCID [Concomitant]
     Route: 051
     Dates: start: 20090116, end: 20090127
  48. AMPHOTERICIN B [Concomitant]
     Route: 051
     Dates: start: 20090116, end: 20090129
  49. PHENIRAMINE [Concomitant]
     Dates: start: 20090120, end: 20090130
  50. ROXITHROMYCIN [Concomitant]
     Dates: start: 20090122, end: 20090126
  51. DOXYCYCLINE [Concomitant]
     Dates: start: 20090127, end: 20090210

REACTIONS (1)
  - SCROTAL ULCER [None]
